FAERS Safety Report 10209285 (Version 3)
Quarter: 2014Q3

REPORT INFORMATION
  Report Type: Spontaneous
  Country: FR (occurrence: FR)
  Receive Date: 20140530
  Receipt Date: 20140708
  Transmission Date: 20150326
  Serious: Yes (Other)
  Sender: FDA-Public Use
  Company Number: FR-ASTRAZENECA-2014SE31891

PATIENT
  Age: 75 Year
  Sex: Male
  Weight: 72 kg

DRUGS (29)
  1. XEROQUEL [Suspect]
     Active Substance: QUETIAPINE FUMARATE
     Indication: AGITATION
     Route: 048
     Dates: start: 20140311, end: 20140323
  2. XEROQUEL [Suspect]
     Active Substance: QUETIAPINE FUMARATE
     Indication: DEMENTIA WITH LEWY BODIES
     Route: 048
     Dates: start: 20140311, end: 20140323
  3. XEROQUEL [Suspect]
     Active Substance: QUETIAPINE FUMARATE
     Indication: AGITATION
     Route: 048
     Dates: start: 20140324, end: 20140402
  4. XEROQUEL [Suspect]
     Active Substance: QUETIAPINE FUMARATE
     Indication: AGITATION
     Route: 048
     Dates: start: 20140403, end: 20140506
  5. STALEVO [Concomitant]
     Active Substance: CARBIDOPA\ENTACAPONE\LEVODOPA
     Indication: EXTRAPYRAMIDAL DISORDER
     Dosage: 200 MG/50 MG/200 MG, ONE DF AT 8:00, AT 12:00, AT 16:00 AND AT 20:00
     Route: 048
  6. ALPRAZOLAM. [Concomitant]
     Active Substance: ALPRAZOLAM
     Indication: GAIT DISTURBANCE
     Route: 048
     Dates: start: 20140328, end: 20140403
  7. XEROQUEL [Suspect]
     Active Substance: QUETIAPINE FUMARATE
     Indication: DEMENTIA WITH LEWY BODIES
     Route: 048
     Dates: start: 20140506, end: 20140514
  8. SINEMET [Concomitant]
     Active Substance: CARBIDOPA\LEVODOPA
     Indication: EXTRAPYRAMIDAL DISORDER
     Dosage: 100 MG/25 MG ONE DF AT 22:00
     Route: 048
  9. ALPRAZOLAM. [Concomitant]
     Active Substance: ALPRAZOLAM
     Indication: GAIT DISTURBANCE
     Route: 048
     Dates: start: 20140321, end: 20140328
  10. SINEMET [Concomitant]
     Active Substance: CARBIDOPA\LEVODOPA
     Indication: PARKINSON^S DISEASE
     Dosage: 100 MG/25 MG ONE DF AT 22:00
     Route: 048
  11. ZYMA D [Concomitant]
     Route: 048
     Dates: start: 20140402, end: 20140402
  12. XEROQUEL [Suspect]
     Active Substance: QUETIAPINE FUMARATE
     Indication: DEMENTIA WITH LEWY BODIES
     Route: 048
     Dates: start: 20140324, end: 20140402
  13. ALPRAZOLAM. [Concomitant]
     Active Substance: ALPRAZOLAM
     Indication: ANXIETY
     Route: 048
     Dates: start: 20140328, end: 20140403
  14. ALPRAZOLAM. [Concomitant]
     Active Substance: ALPRAZOLAM
     Indication: ANXIETY
     Route: 048
     Dates: start: 20140403, end: 20140424
  15. FORLAX [Suspect]
     Active Substance: POLYETHYLENE GLYCOL 4000
     Indication: CONSTIPATION
     Route: 048
  16. ALPRAZOLAM. [Concomitant]
     Active Substance: ALPRAZOLAM
     Indication: GAIT DISTURBANCE
     Route: 048
     Dates: start: 20140319, end: 20140321
  17. ALPRAZOLAM. [Concomitant]
     Active Substance: ALPRAZOLAM
     Indication: GAIT DISTURBANCE
     Route: 048
     Dates: start: 20140403, end: 20140424
  18. EXELON [Concomitant]
     Active Substance: RIVASTIGMINE TARTRATE
     Indication: NERVOUS SYSTEM DISORDER
     Route: 062
  19. ACIDE FOLIQUE [Concomitant]
     Active Substance: FOLIC ACID
     Indication: FOLATE DEFICIENCY
     Route: 048
     Dates: start: 20140319
  20. XEROQUEL [Suspect]
     Active Substance: QUETIAPINE FUMARATE
     Indication: AGITATION
     Route: 048
     Dates: start: 20140506, end: 20140514
  21. LEPONEX [Suspect]
     Active Substance: CLOZAPINE
  22. STALEVO [Concomitant]
     Active Substance: CARBIDOPA\ENTACAPONE\LEVODOPA
     Indication: PARKINSON^S DISEASE
     Dosage: 200 MG/50 MG/200 MG, ONE DF AT 8:00, AT 12:00, AT 16:00 AND AT 20:00
     Route: 048
  23. LEXOMIL [Concomitant]
     Active Substance: BROMAZEPAM
     Indication: ANXIETY
     Route: 048
  24. ALPRAZOLAM. [Concomitant]
     Active Substance: ALPRAZOLAM
     Indication: ANXIETY
     Route: 048
     Dates: start: 20140319, end: 20140321
  25. ALPRAZOLAM. [Concomitant]
     Active Substance: ALPRAZOLAM
     Indication: ANXIETY
     Route: 048
     Dates: start: 20140424
  26. ALPRAZOLAM. [Concomitant]
     Active Substance: ALPRAZOLAM
     Indication: ANXIETY
     Route: 048
     Dates: start: 20140321, end: 20140328
  27. ALPRAZOLAM. [Concomitant]
     Active Substance: ALPRAZOLAM
     Indication: GAIT DISTURBANCE
     Route: 048
     Dates: start: 20140424
  28. XEROQUEL [Suspect]
     Active Substance: QUETIAPINE FUMARATE
     Indication: DEMENTIA WITH LEWY BODIES
     Route: 048
     Dates: start: 20140403, end: 20140506
  29. XANAX [Concomitant]
     Active Substance: ALPRAZOLAM
     Dosage: 0.5 DF AT MIDDAY
     Route: 048

REACTIONS (5)
  - Fall [Unknown]
  - Off label use [Not Recovered/Not Resolved]
  - Extrapyramidal disorder [Unknown]
  - Sexual dysfunction [Recovering/Resolving]
  - Apraxia [Unknown]

NARRATIVE: CASE EVENT DATE: 201404
